FAERS Safety Report 25957081 (Version 1)
Quarter: 2025Q4

REPORT INFORMATION
  Report Type: Spontaneous
  Country: EU (occurrence: EU)
  Receive Date: 20251024
  Receipt Date: 20251024
  Transmission Date: 20260118
  Serious: Yes (Hospitalization)
  Sender: TEVA
  Company Number: None

PATIENT
  Age: 85 Year
  Sex: Female
  Weight: 80 kg

DRUGS (4)
  1. QUETIAPINE [Suspect]
     Active Substance: QUETIAPINE
     Indication: Insomnia
     Dosage: 25MG 0-0-1, QUETIAPINA (1136A)
     Route: 048
     Dates: start: 20190614
  2. TRAZODONE HYDROCHLORIDE [Suspect]
     Active Substance: TRAZODONE HYDROCHLORIDE
     Indication: Bipolar I disorder
     Dosage: 100MG 0-0-1, EFG, 1000 TABLETS
     Route: 048
     Dates: start: 20250617, end: 20250826
  3. LITHIUM CARBONATE [Suspect]
     Active Substance: LITHIUM CARBONATE
     Indication: Bipolar I disorder
     Dosage: 400MG 0.5-0-1, 100 TABLETS
     Route: 048
     Dates: start: 20180123
  4. ABILIFY [Suspect]
     Active Substance: ARIPIPRAZOLE
     Indication: Bipolar I disorder
     Dosage: 5MG 2-0-0, 28 TABLETS
     Route: 048
     Dates: start: 20250227, end: 20250826

REACTIONS (4)
  - Encephalopathy [Recovered/Resolved]
  - Depressed level of consciousness [Recovered/Resolved]
  - Facial myokymia [Recovered/Resolved]
  - Asterixis [Recovered/Resolved]

NARRATIVE: CASE EVENT DATE: 20250821
